FAERS Safety Report 7055262-1 (Version None)
Quarter: 2010Q4

REPORT INFORMATION
  Report Type: 
  Country: None (occurrence: None)
  Receive Date: 20101020
  Receipt Date: 20101020
  Transmission Date: 20110411
  Serious: Yes (Death)
  Sender: FDA-Public Use
  Company Number: None

PATIENT
  Sex: Female
  Weight: 54.4316 kg

DRUGS (1)
  1. PROPYLTHIOURACIL [Suspect]
     Indication: THYROTOXIC CRISIS
     Dosage: 2 TABS 3X DAY
     Dates: start: 20100701, end: 20100711

REACTIONS (3)
  - DRUG TOXICITY [None]
  - OCULAR ICTERUS [None]
  - YELLOW SKIN [None]
